FAERS Safety Report 9350613 (Version 1)
Quarter: 2013Q2

REPORT INFORMATION
  Report Type: Spontaneous
  Country: DE (occurrence: DE)
  Receive Date: 20130617
  Receipt Date: 20130617
  Transmission Date: 20140414
  Serious: Yes (Hospitalization)
  Sender: FDA-Public Use
  Company Number: DE-JNJFOC-20130608301

PATIENT
  Sex: Female

DRUGS (5)
  1. PALEXIA RETARD [Suspect]
     Indication: INTERVERTEBRAL DISC PROTRUSION
     Route: 048
     Dates: start: 201304, end: 201304
  2. IBUPROFEN [Concomitant]
     Indication: INTERVERTEBRAL DISC PROTRUSION
     Route: 065
  3. MUSARIL [Concomitant]
     Indication: INTERVERTEBRAL DISC PROTRUSION
     Route: 065
  4. TRIAMCINOLONE [Concomitant]
     Indication: INTERVERTEBRAL DISC PROTRUSION
     Route: 065
     Dates: start: 201303
  5. NOVALGIN [Concomitant]
     Indication: INTERVERTEBRAL DISC PROTRUSION
     Route: 065

REACTIONS (1)
  - Haemorrhoids [Unknown]
